FAERS Safety Report 16137963 (Version 1)
Quarter: 2019Q1

REPORT INFORMATION
  Report Type: Spontaneous
  Country: US (occurrence: US)
  Receive Date: 20190330
  Receipt Date: 20190330
  Transmission Date: 20190418
  Serious: Yes (Life-Threatening)
  Sender: FDA-Public Use
  Company Number: US-AMERIGEN PHARMACEUTICALS, INC-2019AMG000011

PATIENT

DRUGS (2)
  1. TRANEXAMIC ACID UNKNOWN [Suspect]
     Active Substance: TRANEXAMIC ACID
     Dosage: 3 MG/KG PER HOUR
     Route: 042
  2. TRANEXAMIC ACID UNKNOWN [Suspect]
     Active Substance: TRANEXAMIC ACID
     Indication: CRANIAL OPERATION
     Dosage: 10 MG/KG, UNK
     Route: 042

REACTIONS (3)
  - Peripheral ischaemia [Recovered/Resolved]
  - Peripheral artery thrombosis [Recovered/Resolved]
  - Product use in unapproved indication [Unknown]
